FAERS Safety Report 20375922 (Version 1)
Quarter: 2022Q1

REPORT INFORMATION
  Report Type: Spontaneous
  Country: US (occurrence: US)
  Receive Date: 20220125
  Receipt Date: 20220125
  Transmission Date: 20220423
  Serious: Yes (Hospitalization)
  Sender: FDA-Public Use
  Company Number: US-SA-SAC20220118000770

PATIENT
  Age: 38 Year
  Sex: Female

DRUGS (2)
  1. LEMTRADA [Suspect]
     Active Substance: ALEMTUZUMAB
     Dosage: 12 MG, QD
  2. LEMTRADA [Suspect]
     Active Substance: ALEMTUZUMAB
     Dosage: 12 MG, QD

REACTIONS (9)
  - Periorbital oedema [Unknown]
  - Ultrasound liver abnormal [Unknown]
  - Blood cholesterol increased [Unknown]
  - Liver disorder [Unknown]
  - Hepatic function abnormal [Unknown]
  - Renal disorder [Unknown]
  - Blood urea increased [Unknown]
  - Blood creatinine increased [Unknown]
  - Hepatic enzyme increased [Unknown]
